FAERS Safety Report 8455902 (Version 3)
Quarter: 2012Q4

REPORT INFORMATION
  Report Type: 
  Country: JP (occurrence: JP)
  Receive Date: 20120313
  Receipt Date: 20120906
  Transmission Date: 20130627
  Serious: Yes (Death, Other)
  Sender: FDA-Public Use
  Company Number: JP-BAXTER-2012BH007030

PATIENT
  Age: 61 Year
  Sex: Male

DRUGS (29)
  1. ENDOXAN [Suspect]
     Indication: IDIOPATHIC PULMONARY FIBROSIS
     Route: 042
     Dates: start: 20110121, end: 20110121
  2. ENDOXAN [Suspect]
     Route: 042
     Dates: start: 20110105, end: 20110105
  3. PIRESPA [Suspect]
     Indication: IDIOPATHIC PULMONARY FIBROSIS
     Route: 048
     Dates: start: 20090610, end: 20090623
  4. PIRFENIDONE [Suspect]
     Route: 048
     Dates: start: 20090624, end: 20090707
  5. PIRFENIDONE [Suspect]
     Route: 048
     Dates: start: 20090708, end: 20101230
  6. PIRFENIDONE [Suspect]
     Route: 048
     Dates: start: 20101231, end: 20110124
  7. RINDERON [Suspect]
     Indication: IDIOPATHIC PULMONARY FIBROSIS
     Route: 065
     Dates: start: 20110101, end: 20110124
  8. SANDIMMUN [Suspect]
     Indication: IDIOPATHIC PULMONARY FIBROSIS
     Route: 065
     Dates: start: 20101231, end: 20110124
  9. PREDONINE [Concomitant]
     Indication: IDIOPATHIC PULMONARY FIBROSIS
     Route: 048
     Dates: end: 20090609
  10. PREDONINE [Concomitant]
     Route: 048
     Dates: start: 20090610, end: 20100111
  11. PREDONINE [Concomitant]
     Route: 048
     Dates: start: 20100112, end: 20101228
  12. NEORAL [Concomitant]
     Indication: IDIOPATHIC PULMONARY FIBROSIS
     Route: 048
     Dates: end: 20090609
  13. NEORAL [Concomitant]
     Route: 048
     Dates: start: 20101229, end: 20101230
  14. THEOLONG [Concomitant]
     Indication: IDIOPATHIC PULMONARY FIBROSIS
     Route: 048
     Dates: end: 20101231
  15. DAIPHEN [Concomitant]
     Indication: PROPHYLAXIS
     Route: 048
  16. OMEPRAL [Concomitant]
     Indication: DRUG USE FOR UNKNOWN INDICATION
     Route: 048
     Dates: end: 20101231
  17. OMEPRAL [Concomitant]
     Route: 048
     Dates: start: 20110101, end: 20110125
  18. FOSAMAC [Concomitant]
     Indication: PROPHYLAXIS
     Route: 048
     Dates: end: 20101231
  19. AMLODIN [Concomitant]
     Indication: DRUG USE FOR UNKNOWN INDICATION
     Route: 048
     Dates: end: 20101231
  20. DIOVAN [Concomitant]
     Indication: DRUG USE FOR UNKNOWN INDICATION
     Route: 048
     Dates: end: 20101231
  21. BROTIZOLAM [Concomitant]
     Indication: INSOMNIA
     Route: 048
     Dates: start: 20090616, end: 20090713
  22. WARFARIN [Concomitant]
     Indication: ATRIAL FLUTTER
     Route: 048
     Dates: start: 20091205
  23. SOL-MELCORT [Concomitant]
     Indication: IDIOPATHIC PULMONARY FIBROSIS
     Route: 065
     Dates: start: 20101229, end: 20101231
  24. ELASPOL [Concomitant]
     Indication: IDIOPATHIC PULMONARY FIBROSIS
     Route: 065
     Dates: start: 20101231, end: 20110112
  25. DORMICUM [Concomitant]
     Indication: SEDATION
     Route: 065
     Dates: start: 20101231, end: 20110124
  26. DIPRIVAN [Concomitant]
     Indication: SEDATION
     Route: 065
     Dates: start: 20101231, end: 20110124
  27. FENTANYL [Concomitant]
     Indication: SEDATION
     Route: 065
     Dates: start: 20101231, end: 20110125
  28. INOVAN [Concomitant]
     Indication: BLOOD PRESSURE DECREASED
     Route: 065
     Dates: start: 20101231, end: 20110124
  29. NORADRENALINE [Concomitant]
     Indication: BLOOD PRESSURE DECREASED
     Route: 065
     Dates: start: 20101231, end: 20110124

REACTIONS (5)
  - Bronchopulmonary aspergillosis [Fatal]
  - Atrial flutter [Recovering/Resolving]
  - Insomnia [Recovered/Resolved]
  - Blood lactate dehydrogenase increased [Not Recovered/Not Resolved]
  - Gamma-glutamyltransferase increased [Recovering/Resolving]
